FAERS Safety Report 9338980 (Version 1)
Quarter: 2013Q2

REPORT INFORMATION
  Report Type: Spontaneous
  Country: US (occurrence: None)
  Receive Date: 20130606
  Receipt Date: 20130606
  Transmission Date: 20140414
  Serious: Yes (Hospitalization)
  Sender: FDA-Public Use
  Company Number: None

PATIENT
  Age: 63 Year
  Sex: Female
  Weight: 61.5 kg

DRUGS (1)
  1. VORINOSTAT [Suspect]
     Indication: NON-SMALL CELL LUNG CANCER
     Dosage: 1  QD 3 X WEEL  PO
     Route: 048
     Dates: start: 20130427, end: 20130501

REACTIONS (3)
  - Cardiac disorder [None]
  - Brain natriuretic peptide increased [None]
  - Cardiac enzymes increased [None]
